FAERS Safety Report 16221886 (Version 2)
Quarter: 2019Q4

REPORT INFORMATION
  Report Type: Report from Study
  Country: US (occurrence: US)
  Receive Date: 20190422
  Receipt Date: 20191113
  Transmission Date: 20200122
  Serious: Yes (Hospitalization, Other)
  Sender: FDA-Public Use
  Company Number: US-SA-2019SA109639

PATIENT
  Age: 67 Year
  Sex: Female

DRUGS (12)
  1. CALCIUM [Concomitant]
     Active Substance: CALCIUM
  2. DELZICOL [Concomitant]
     Active Substance: MESALAMINE
  3. VESICARE [Concomitant]
     Active Substance: SOLIFENACIN SUCCINATE
  4. ZETIA [Concomitant]
     Active Substance: EZETIMIBE
  5. TERIFLUNOMIDE. [Suspect]
     Active Substance: TERIFLUNOMIDE
     Indication: MULTIPLE SCLEROSIS
     Dosage: 14 MG, QD
     Route: 048
     Dates: start: 201412
  6. COLACE [Concomitant]
     Active Substance: DOCUSATE SODIUM
  7. CRESTOR [Concomitant]
     Active Substance: ROSUVASTATIN CALCIUM
  8. CANASA [Concomitant]
     Active Substance: MESALAMINE
  9. DITROPAN [Concomitant]
     Active Substance: OXYBUTYNIN CHLORIDE
  10. FISH OIL [Concomitant]
     Active Substance: FISH OIL
  11. MYRBETRIQ [Concomitant]
     Active Substance: MIRABEGRON
  12. NITROFURANTOIN. [Concomitant]
     Active Substance: NITROFURANTOIN

REACTIONS (2)
  - Fatigue [Not Recovered/Not Resolved]
  - Aortic stenosis [Unknown]
